FAERS Safety Report 23434090 (Version 1)
Quarter: 2024Q1

REPORT INFORMATION
  Report Type: Spontaneous
  Country: IT (occurrence: IT)
  Receive Date: 20240123
  Receipt Date: 20240123
  Transmission Date: 20240409
  Serious: Yes (Other)
  Sender: FDA-Public Use
  Company Number: None

PATIENT
  Age: 77 Year
  Sex: Male

DRUGS (2)
  1. PACLITAXEL [Suspect]
     Active Substance: PACLITAXEL
     Indication: Gastric cancer
     Dosage: 100 MILLIGRAM (START OF THERAPY 19/04/2023 - THERAPY G1, 8, 15 - II CYCLE G8)
     Route: 042
     Dates: start: 20230524, end: 20230524
  2. RAMUCIRUMAB [Suspect]
     Active Substance: RAMUCIRUMAB
     Indication: Gastric cancer
     Dosage: 480 MILLIGRAM (START OF THERAPY 19/04/2023 - THERAPY G1, 8, 15 - II CYCLE G8)
     Route: 042
     Dates: start: 20230517, end: 20230517

REACTIONS (3)
  - Azotaemia [Recovering/Resolving]
  - Neutropenia [Recovering/Resolving]
  - Gamma-glutamyltransferase increased [Recovering/Resolving]

NARRATIVE: CASE EVENT DATE: 20230601
